FAERS Safety Report 10280601 (Version 1)
Quarter: 2014Q3

REPORT INFORMATION
  Report Type: Spontaneous
  Country: JP (occurrence: JP)
  Receive Date: 20140707
  Receipt Date: 20140707
  Transmission Date: 20150326
  Serious: Yes (Other)
  Sender: FDA-Public Use
  Company Number: JP-TEVA-491786ISR

PATIENT

DRUGS (2)
  1. (TS)SPIRONOLACTONE [Suspect]
     Active Substance: SPIRONOLACTONE
  2. (TS)FUROSEMIDE INJECTION 20MG ^TAIYO^,INJ,20MG1AMPOULE [Suspect]
     Active Substance: FUROSEMIDE

REACTIONS (1)
  - Renal impairment [Unknown]
